FAERS Safety Report 5004198-6 (Version None)
Quarter: 2006Q2

REPORT INFORMATION
  Report Type: 
  Country: None (occurrence: None)
  Receive Date: 20060517
  Receipt Date: 20051021
  Transmission Date: 20061013
  Serious: Yes (Other)
  Sender: FDA-Public Use
  Company Number: PHBS2005NO15770

PATIENT
  Sex: Female

DRUGS (8)
  1. ZOMETA [Suspect]
     Indication: METASTASES TO BONE
     Dosage: 4 MG, QMO
     Dates: start: 20010101, end: 20050826
  2. AREDIA [Suspect]
     Indication: METASTASES TO BONE
     Dosage: UNK, UNK
     Dates: start: 20010101, end: 20020101
  3. DOLCONTIN [Concomitant]
     Route: 065
  4. PARALGIN FORTE [Concomitant]
     Route: 065
  5. FEMARA [Concomitant]
     Route: 065
  6. FRAGMIN [Concomitant]
     Route: 065
  7. ANERVAN [Concomitant]
     Route: 065
  8. MORFIN [Concomitant]
     Route: 065

REACTIONS (10)
  - BONE DEBRIDEMENT [None]
  - BONE DISORDER [None]
  - DENTAL PROSTHESIS PLACEMENT [None]
  - INFECTION [None]
  - JAW DISORDER [None]
  - OSTEONECROSIS [None]
  - PAIN [None]
  - TOOTH DISORDER [None]
  - TOOTH EXTRACTION [None]
  - WOUND DEBRIDEMENT [None]
